FAERS Safety Report 8104889-4 (Version None)
Quarter: 2012Q1

REPORT INFORMATION
  Report Type: 
  Country: None (occurrence: None)
  Receive Date: 20120201
  Receipt Date: 20120130
  Transmission Date: 20120608
  Serious: Yes (Hospitalization, Congenital Anomaly)
  Sender: FDA-Public Use
  Company Number: US-GLAXOSMITHKLINE-A0918322A

PATIENT
  Sex: Male

DRUGS (3)
  1. PAROXETINE HYDROCHLORIDE [Suspect]
     Indication: PRODUCT USED FOR UNKNOWN INDICATION
     Route: 064
  2. PAXIL [Suspect]
     Indication: PRODUCT USED FOR UNKNOWN INDICATION
     Route: 064
     Dates: end: 20060124
  3. VITAMIN TAB [Concomitant]

REACTIONS (3)
  - FOETAL EXPOSURE DURING PREGNANCY [None]
  - WOLFF-PARKINSON-WHITE SYNDROME [None]
  - CONGENITAL ANOMALY [None]
